FAERS Safety Report 21924151 (Version 2)
Quarter: 2023Q1

REPORT INFORMATION
  Report Type: Report from Study
  Country: US (occurrence: US)
  Receive Date: 20230130
  Receipt Date: 20230131
  Transmission Date: 20230418
  Serious: No
  Sender: FDA-Public Use
  Company Number: US-002147023-NVSC2023US019509

PATIENT
  Sex: Female

DRUGS (5)
  1. CLOBETASOL PROPIONATE [Suspect]
     Active Substance: CLOBETASOL PROPIONATE
     Indication: Psoriatic arthropathy
     Dosage: 0.05 %, BID
     Route: 061
  2. CLOBETASOL PROPIONATE [Suspect]
     Active Substance: CLOBETASOL PROPIONATE
     Indication: Psoriasis
  3. CICLOPIROX [Suspect]
     Active Substance: CICLOPIROX
     Indication: Psoriatic arthropathy
     Dosage: 0.77 %, QD
     Route: 061
  4. CICLOPIROX [Suspect]
     Active Substance: CICLOPIROX
     Indication: Psoriasis
  5. TERBINAFINE HYDROCHLORIDE [Suspect]
     Active Substance: TERBINAFINE HYDROCHLORIDE
     Indication: Nail psoriasis
     Dosage: 250 MG, QD
     Route: 048

REACTIONS (11)
  - Dermatitis contact [Unknown]
  - Joint stiffness [Unknown]
  - Onychomycosis [Unknown]
  - Nail pitting [Unknown]
  - Dermatitis psoriasiform [Unknown]
  - Hyperkeratosis [Unknown]
  - Skin plaque [Unknown]
  - Onycholysis [Unknown]
  - Depression [Unknown]
  - Arthralgia [Unknown]
  - Pruritus [Unknown]
